FAERS Safety Report 15384032 (Version 1)
Quarter: 2018Q3

REPORT INFORMATION
  Report Type: Spontaneous
  Country: US (occurrence: US)
  Receive Date: 20180829
  Receipt Date: 20180829
  Transmission Date: 20181010
  Serious: Yes (Life-Threatening, Other)
  Sender: FDA-Public Use
  Company Number: None

PATIENT
  Age: 63 Year
  Sex: Female
  Weight: 127.01 kg

DRUGS (9)
  1. PRAVASTATIN. [Concomitant]
     Active Substance: PRAVASTATIN
  2. VITAFUSION WOMENS VITAMINS GUMMIES [Concomitant]
  3. ADULT ASPIRIN [Concomitant]
  4. L?THYROXINE (SYNTHROID) TABS 200MCG GENERIC FOR: SYNTHROID TABS [Suspect]
     Active Substance: LEVOTHYROXINE SODIUM
     Indication: HYPOTHYROIDISM
     Route: 048
     Dates: start: 20180713, end: 20180803
  5. OXYCODONE [Concomitant]
     Active Substance: OXYCODONE
  6. LEVOXYL [Concomitant]
     Active Substance: LEVOTHYROXINE SODIUM
  7. ALPRAZOLAM. [Concomitant]
     Active Substance: ALPRAZOLAM
  8. METOPROLOL. [Concomitant]
     Active Substance: METOPROLOL
  9. DIGESTIVE ADVANTAGE PROBIOTICS GUMMIES [Concomitant]

REACTIONS (4)
  - Tremor [None]
  - Anxiety [None]
  - Confusional state [None]
  - Dysphemia [None]

NARRATIVE: CASE EVENT DATE: 20180713
